FAERS Safety Report 19121303 (Version 1)
Quarter: 2021Q2

REPORT INFORMATION
  Report Type: Spontaneous
  Country: US (occurrence: US)
  Receive Date: 20210412
  Receipt Date: 20210412
  Transmission Date: 20210717
  Serious: No
  Sender: FDA-Public Use
  Company Number: None

PATIENT
  Age: 7 Year
  Sex: Female

DRUGS (1)
  1. LUPRON DEPOT?PED [Suspect]
     Active Substance: LEUPROLIDE ACETATE
     Dosage: OTHER
     Route: 030
     Dates: start: 202008

REACTIONS (3)
  - Anger [None]
  - Abnormal behaviour [None]
  - Screaming [None]

NARRATIVE: CASE EVENT DATE: 20210301
